FAERS Safety Report 7607259-8 (Version None)
Quarter: 2011Q3

REPORT INFORMATION
  Report Type: 
  Country: None (occurrence: None)
  Receive Date: 20110713
  Receipt Date: 20110706
  Transmission Date: 20111222
  Serious: Yes (Hospitalization, Other)
  Sender: FDA-Public Use
  Company Number: FR-ABBOTT-11P-056-0707257-00

PATIENT
  Sex: Female
  Weight: 55 kg

DRUGS (4)
  1. LEFLUNOMIDE [Concomitant]
     Indication: RHEUMATOID ARTHRITIS
  2. LANSOPRAZOLE [Suspect]
     Indication: PROPHYLAXIS
     Route: 047
     Dates: start: 20101115, end: 20110223
  3. ARAVA [Suspect]
     Indication: RHEUMATOID ARTHRITIS
     Route: 048
     Dates: end: 20110126
  4. HUMIRA [Suspect]
     Indication: RHEUMATOID ARTHRITIS
     Route: 058
     Dates: start: 20101127, end: 20110124

REACTIONS (12)
  - GAMMA-GLUTAMYLTRANSFERASE INCREASED [None]
  - IMPETIGO [None]
  - DERMATITIS PSORIASIFORM [None]
  - ACUTE GENERALISED EXANTHEMATOUS PUSTULOSIS [None]
  - BLOOD ALKALINE PHOSPHATASE INCREASED [None]
  - PURPURA [None]
  - RASH PUSTULAR [None]
  - PYREXIA [None]
  - ERYTHEMA [None]
  - VASCULITIS [None]
  - EXFOLIATIVE RASH [None]
  - VASCULITIC RASH [None]
